FAERS Safety Report 10555473 (Version 1)
Quarter: 2014Q4

REPORT INFORMATION
  Report Type: Spontaneous
  Country: IN (occurrence: IN)
  Receive Date: 20141030
  Receipt Date: 20141030
  Transmission Date: 20150529
  Serious: Yes (Hospitalization)
  Sender: FDA-Public Use
  Company Number: IN-PFIZER INC-2014299489

PATIENT
  Age: 35 Year
  Sex: Female

DRUGS (2)
  1. AMLODIPINE BESILATE [Suspect]
     Active Substance: AMLODIPINE BESYLATE
     Dosage: 1000 MG, UNK (100 TABLETS OF 10 MG)
     Route: 048
  2. ATENOLOL. [Suspect]
     Active Substance: ATENOLOL
     Dosage: 5000 MG, UNK (100 TABLETS OF 50 MG)
     Route: 048

REACTIONS (7)
  - Suicide attempt [Recovered/Resolved]
  - Shock [Recovered/Resolved]
  - Atrioventricular block second degree [Recovered/Resolved]
  - Acute kidney injury [Recovered/Resolved]
  - Intentional overdose [Recovered/Resolved]
  - Hyperglycaemia [Recovered/Resolved]
  - Depressed level of consciousness [Recovered/Resolved]
